FAERS Safety Report 6593249-3 (Version None)
Quarter: 2010Q1

REPORT INFORMATION
  Report Type: 
  Country: None (occurrence: None)
  Receive Date: 20100212
  Receipt Date: 20100125
  Transmission Date: 20100710
  Serious: Yes (Hospitalization)
  Sender: FDA-Public Use
  Company Number: 220001J10ESP

PATIENT
  Age: 13 Year
  Sex: Male

DRUGS (3)
  1. SAIZEN [Suspect]
     Dosage: , 1 IN 1 DAYS, SUBCUTANEOUS; 1.1 MG, 1 IN 1 DAYS, SUBCUTANEOUS; 1.3 MA, 1 IN 1 DAYS, SUBCUTANEOUS
     Route: 058
     Dates: start: 20080501, end: 20090101
  2. SAIZEN [Suspect]
     Dosage: , 1 IN 1 DAYS, SUBCUTANEOUS; 1.1 MG, 1 IN 1 DAYS, SUBCUTANEOUS; 1.3 MA, 1 IN 1 DAYS, SUBCUTANEOUS
     Route: 058
     Dates: start: 20090101, end: 20091101
  3. SAIZEN [Suspect]
     Dosage: , 1 IN 1 DAYS, SUBCUTANEOUS; 1.1 MG, 1 IN 1 DAYS, SUBCUTANEOUS; 1.3 MA, 1 IN 1 DAYS, SUBCUTANEOUS
     Route: 058
     Dates: start: 20091101

REACTIONS (2)
  - CONDITION AGGRAVATED [None]
  - TOURETTE'S DISORDER [None]
